FAERS Safety Report 13783791 (Version 1)
Quarter: 2017Q3

REPORT INFORMATION
  Report Type: Spontaneous
  Country: SE (occurrence: SE)
  Receive Date: 20170724
  Receipt Date: 20170724
  Transmission Date: 20171127
  Serious: Yes (Other)
  Sender: FDA-Public Use
  Company Number: SE-JNJFOC-20170713837

PATIENT

DRUGS (1)
  1. INFLIXIMAB, RECOMBINANT [Suspect]
     Active Substance: INFLIXIMAB
     Indication: RHEUMATOID ARTHRITIS
     Dosage: FOR 30DAYS
     Route: 042

REACTIONS (8)
  - Scleritis [Unknown]
  - Episcleritis [Unknown]
  - Neuropathy peripheral [Unknown]
  - Pleurisy [Unknown]
  - Interstitial lung disease [Unknown]
  - Cutaneous vasculitis [Unknown]
  - Felty^s syndrome [Unknown]
  - Retinal vasculitis [Unknown]
